FAERS Safety Report 6025223-X (Version None)
Quarter: 2008Q4

REPORT INFORMATION
  Report Type: 
  Country: None (occurrence: None)
  Receive Date: 20081229
  Receipt Date: 20081229
  Transmission Date: 20090506
  Serious: Yes (Disabling)
  Sender: FDA-Public Use
  Company Number: None

PATIENT
  Sex: Female
  Weight: 59.8748 kg

DRUGS (1)
  1. RECLAST [Suspect]
     Indication: BONE DENSITY DECREASED
     Dosage: 1X IV DRIP
     Route: 041
     Dates: start: 20080209, end: 20080209

REACTIONS (2)
  - OSTEONECROSIS [None]
  - PAIN [None]
